FAERS Safety Report 18968477 (Version 1)
Quarter: 2021Q1

REPORT INFORMATION
  Report Type: Spontaneous
  Country: US (occurrence: US)
  Receive Date: 20210303
  Receipt Date: 20210303
  Transmission Date: 20210420
  Serious: Yes (Death)
  Sender: FDA-Public Use
  Company Number: None

PATIENT
  Age: 84 Year
  Sex: Male
  Weight: 99.79 kg

DRUGS (2)
  1. IVERMECTIN. [Suspect]
     Active Substance: IVERMECTIN
     Indication: COVID-19
     Dosage: ?          OTHER FREQUENCY:2 DOSES;?
     Route: 048
     Dates: start: 20200708, end: 20200713
  2. CEFTRIAXONE. [Suspect]
     Active Substance: CEFTRIAXONE
     Dosage: ?          OTHER DOSE:2 GM;?
     Route: 042
     Dates: start: 20200707, end: 20200720

REACTIONS (2)
  - COVID-19 [None]
  - Death [None]

NARRATIVE: CASE EVENT DATE: 20200722
